FAERS Safety Report 7200520-0 (Version None)
Quarter: 2010Q4

REPORT INFORMATION
  Report Type: 
  Country: None (occurrence: None)
  Receive Date: 20101228
  Receipt Date: 20101217
  Transmission Date: 20110411
  Serious: Yes (Other)
  Sender: FDA-Public Use
  Company Number: CA-JNJFOC-20101207215

PATIENT
  Sex: Male
  Weight: 90.3 kg

DRUGS (3)
  1. REMICADE [Suspect]
     Indication: CROHN'S DISEASE
     Route: 042
  2. REMICADE [Suspect]
     Route: 042
  3. OXYCET [Concomitant]

REACTIONS (2)
  - GASTROINTESTINAL STOMA COMPLICATION [None]
  - PAIN [None]
